FAERS Safety Report 7240283-6 (Version None)
Quarter: 2011Q1

REPORT INFORMATION
  Report Type: 
  Country: None (occurrence: None)
  Receive Date: 20110124
  Receipt Date: 20110112
  Transmission Date: 20110831
  Serious: Yes (Hospitalization)
  Sender: FDA-Public Use
  Company Number: PHFR2010GB05979

PATIENT
  Age: 84 Year
  Sex: Male

DRUGS (2)
  1. DABIGATRAN ETEXILATE [Suspect]
     Indication: THROMBOSIS PROPHYLAXIS
     Dosage: 150 MG / DAY
     Route: 048
  2. DICLOFENAC [Suspect]
     Indication: ANALGESIC THERAPY
     Dosage: 1200 MG, UNK
     Route: 048

REACTIONS (2)
  - RECTAL HAEMORRHAGE [None]
  - PULMONARY EMBOLISM [None]
